FAERS Safety Report 8441382-3 (Version None)
Quarter: 2012Q2

REPORT INFORMATION
  Report Type: 
  Country: None (occurrence: None)
  Receive Date: 20120615
  Receipt Date: 20110824
  Transmission Date: 20120825
  Serious: No
  Sender: FDA-Public Use
  Company Number: US-NOVEN-11US003043

PATIENT
  Sex: Female

DRUGS (11)
  1. CLONAZEPAM [Concomitant]
     Indication: EPILEPSY
     Dosage: 1 MG, BEDTIME
     Route: 048
  2. OXYBUTYNIN [Concomitant]
     Indication: BLADDER SPASM
     Dosage: 5 MG, QD
     Route: 048
  3. LIPITOR [Concomitant]
     Indication: BLOOD CHOLESTEROL INCREASED
     Dosage: 10 MG, BEDTIME
     Route: 048
  4. DAYTRANA [Suspect]
     Indication: ATTENTION DEFICIT/HYPERACTIVITY DISORDER
     Dosage: 20 MG, QD
     Route: 062
     Dates: start: 20110822
  5. NEUROTIN                           /00949202/ [Concomitant]
     Indication: EPILEPSY
     Dosage: 800 MG, Q 12HR.
     Route: 048
  6. DILANTIN [Concomitant]
     Indication: EPILEPSY
     Dosage: 400 MG, BEDTIME
     Route: 048
  7. OMEPRAZOLE [Concomitant]
     Indication: DYSPEPSIA
     Dosage: 20 MG, Q 12HR.
     Route: 048
  8. ZOLPIDEM [Concomitant]
     Indication: INSOMNIA
     Dosage: 10 MG, BEDTIME
     Route: 048
  9. PREMARIN [Concomitant]
     Indication: MENOPAUSE
     Dosage: 0.3 MG, QD
     Route: 048
  10. RISPERIDONE [Concomitant]
     Dosage: 0.5 MG, QD
     Route: 048
  11. LEXAPRO [Concomitant]
     Indication: DEPRESSION
     Dosage: 20 MG, QD
     Route: 048

REACTIONS (3)
  - INCORRECT STORAGE OF DRUG [None]
  - SOMNOLENCE [None]
  - OFF LABEL USE [None]
